FAERS Safety Report 17881668 (Version 1)
Quarter: 2020Q2

REPORT INFORMATION
  Report Type: Spontaneous
  Country: US (occurrence: US)
  Receive Date: 20200610
  Receipt Date: 20200610
  Transmission Date: 20200714
  Serious: No
  Sender: FDA-Public Use
  Company Number: US-SA-2020SA146509

PATIENT

DRUGS (1)
  1. DUPIXENT [Suspect]
     Active Substance: DUPILUMAB
     Indication: DERMATITIS ATOPIC
     Dosage: UNK UNK, QOW
     Dates: start: 201908, end: 202004

REACTIONS (7)
  - Dyspnoea [Unknown]
  - Pyrexia [Unknown]
  - Drug ineffective [Unknown]
  - Condition aggravated [Unknown]
  - Eczema [Unknown]
  - Peripheral swelling [Unknown]
  - Cardiac disorder [Unknown]

NARRATIVE: CASE EVENT DATE: 202004
